FAERS Safety Report 24368497 (Version 1)
Quarter: 2024Q3

REPORT INFORMATION
  Report Type: Spontaneous
  Country: FR (occurrence: FR)
  Receive Date: 20240926
  Receipt Date: 20240926
  Transmission Date: 20241017
  Serious: Yes (Other)
  Sender: BOEHRINGER INGELHEIM
  Company Number: None

PATIENT
  Age: 61 Year
  Sex: Male
  Weight: 80 kg

DRUGS (1)
  1. SPIRIVA RESPIMAT [Suspect]
     Active Substance: TIOTROPIUM BROMIDE
     Indication: Emphysema
     Route: 055
     Dates: start: 20240215, end: 20240720

REACTIONS (4)
  - Chromaturia [Recovered/Resolved]
  - Urinary incontinence [Recovered/Resolved]
  - Penile pain [Recovered/Resolved]
  - Perineal pain [Recovered/Resolved]

NARRATIVE: CASE EVENT DATE: 20240420
